FAERS Safety Report 7057615-4 (Version None)
Quarter: 2010Q4

REPORT INFORMATION
  Report Type: 
  Country: None (occurrence: None)
  Receive Date: 20101022
  Receipt Date: 20101011
  Transmission Date: 20110411
  Serious: Yes (Other)
  Sender: FDA-Public Use
  Company Number: PHHY2010FR57321

PATIENT
  Age: 64 Year
  Sex: Male
  Weight: 110 kg

DRUGS (3)
  1. SANDOSTATIN LAR [Suspect]
     Dosage: 30 MG, QMO
     Route: 030
     Dates: start: 20100630
  2. LERCAPRESS [Suspect]
     Dosage: 1 DF, QD
     Route: 048
     Dates: start: 20100801, end: 20100801
  3. LERCANIDIPINE [Concomitant]
     Dosage: 10 MG, QD
     Dates: start: 20100101, end: 20100701

REACTIONS (5)
  - ABDOMINAL DISTENSION [None]
  - ACNE [None]
  - DIARRHOEA [None]
  - HYPERSENSITIVITY [None]
  - URTICARIA [None]
